FAERS Safety Report 14533269 (Version 1)
Quarter: 2018Q1

REPORT INFORMATION
  Report Type: Report from Study
  Country: US (occurrence: US)
  Receive Date: 20180215
  Receipt Date: 20180215
  Transmission Date: 20180509
  Serious: Yes (Other)
  Sender: FDA-Public Use
  Company Number: US-ROCHE-1413351

PATIENT
  Sex: Female
  Weight: 11.44 kg

DRUGS (7)
  1. NUTROPIN AQ [Suspect]
     Active Substance: SOMATROPIN
     Route: 058
  2. NUTROPIN AQ [Suspect]
     Active Substance: SOMATROPIN
     Indication: GROWTH HORMONE DEFICIENCY
     Dosage: NUSPIN 20
     Route: 058
     Dates: start: 200904
  3. NUTROPIN AQ [Suspect]
     Active Substance: SOMATROPIN
     Indication: PRADER-WILLI SYNDROME
     Route: 058
  4. NUTROPIN AQ [Suspect]
     Active Substance: SOMATROPIN
     Route: 058
  5. NUTROPIN AQ [Suspect]
     Active Substance: SOMATROPIN
     Indication: BODY HEIGHT BELOW NORMAL
     Route: 058
  6. COENZYME Q10 [Concomitant]
     Active Substance: UBIDECARENONE
  7. BOTOX [Concomitant]
     Active Substance: ONABOTULINUMTOXINA

REACTIONS (17)
  - Blood glucose decreased [Unknown]
  - Thyroxine free decreased [Unknown]
  - Abnormal behaviour [Unknown]
  - Diarrhoea [Recovered/Resolved]
  - Clumsiness [Unknown]
  - Insulin C-peptide decreased [Unknown]
  - Aggression [Unknown]
  - Hypoglycaemia [Unknown]
  - Sleep apnoea syndrome [Unknown]
  - Congenital naevus [Unknown]
  - Scoliosis [Unknown]
  - Constipation [Unknown]
  - Lethargy [Unknown]
  - Speech disorder [Unknown]
  - Snoring [Recovered/Resolved]
  - Papule [Unknown]
  - Blood creatinine decreased [Unknown]
